FAERS Safety Report 12305246 (Version 2)
Quarter: 2016Q2

REPORT INFORMATION
  Report Type: Spontaneous
  Country: US (occurrence: US)
  Receive Date: 20160426
  Receipt Date: 20160502
  Transmission Date: 20160815
  Serious: Yes (Death, Life-Threatening, Hospitalization)
  Sender: FDA-Public Use
  Company Number: US-UNITED THERAPEUTICS-UNT-2016-006517

PATIENT
  Age: 66 Year
  Sex: Female
  Weight: 78.5 kg

DRUGS (1)
  1. REMODULIN [Suspect]
     Active Substance: TREPROSTINIL
     Indication: PULMONARY ARTERIAL HYPERTENSION
     Dosage: UNK
     Route: 041
     Dates: start: 20160310, end: 20160421

REACTIONS (2)
  - Pneumonia [Unknown]
  - Respiratory distress [Fatal]

NARRATIVE: CASE EVENT DATE: 20160419
